FAERS Safety Report 9070435 (Version 2)
Quarter: 2013Q1

REPORT INFORMATION
  Report Type: Spontaneous
  Country: US (occurrence: US)
  Receive Date: 20130215
  Receipt Date: 20130221
  Transmission Date: 20140127
  Serious: Yes (Life-Threatening)
  Sender: FDA-Public Use
  Company Number: PHEH2013US003366

PATIENT
  Sex: Female

DRUGS (5)
  1. CARBAMAZEPINE [Suspect]
  2. CYMBALTA [Concomitant]
     Indication: SPINAL CORD INJURY
     Dosage: 60 MG, DAILY EACH EVENING
     Dates: start: 2005
  3. ZONEGRAN [Concomitant]
  4. ADVAIR [Concomitant]
  5. SINGULAIR [Concomitant]

REACTIONS (10)
  - Feeling abnormal [Unknown]
  - Anaphylactic reaction [Unknown]
  - Wheezing [Unknown]
  - Swelling face [Unknown]
  - Swollen tongue [Unknown]
  - Increased upper airway secretion [Unknown]
  - Food aversion [Unknown]
  - Malaise [Unknown]
  - Pyrexia [Unknown]
  - Vomiting [Unknown]
